FAERS Safety Report 16678000 (Version 1)
Quarter: 2019Q3

REPORT INFORMATION
  Report Type: Spontaneous
  Country: US (occurrence: US)
  Receive Date: 20190807
  Receipt Date: 20190807
  Transmission Date: 20191004
  Serious: No
  Sender: FDA-Public Use
  Company Number: US-GILEAD-2019-0422027

PATIENT
  Age: 71 Year
  Sex: Male

DRUGS (1)
  1. ATRIPLA [Suspect]
     Active Substance: EFAVIRENZ\EMTRICITABINE\TENOFOVIR DISOPROXIL FUMARATE
     Indication: HIV INFECTION
     Dosage: UNK
     Route: 065

REACTIONS (5)
  - Tooth loss [Unknown]
  - Gingival recession [Unknown]
  - Chronic obstructive pulmonary disease [Unknown]
  - T-lymphocyte count decreased [Not Recovered/Not Resolved]
  - Bone loss [Unknown]
